FAERS Safety Report 14155645 (Version 2)
Quarter: 2017Q4

REPORT INFORMATION
  Report Type: Spontaneous
  Country: JP (occurrence: JP)
  Receive Date: 20171103
  Receipt Date: 20171122
  Transmission Date: 20180321
  Serious: Yes (Hospitalization)
  Sender: FDA-Public Use
  Company Number: JP-UNITED THERAPEUTICS-UNT-2017-015342

PATIENT
  Age: 51 Year
  Sex: Female
  Weight: 40 kg

DRUGS (6)
  1. REMODULIN [Suspect]
     Active Substance: TREPROSTINIL
     Dosage: 17 MCL/H, UNK
     Route: 058
     Dates: start: 2017
  2. REMODULIN [Suspect]
     Active Substance: TREPROSTINIL
     Dosage: 18 MCL/H, UNK
     Route: 058
     Dates: start: 2017
  3. REMODULIN [Suspect]
     Active Substance: TREPROSTINIL
     Indication: PULMONARY ARTERIAL HYPERTENSION
     Dosage: UNK
     Route: 058
     Dates: start: 20160128
  4. REMODULIN [Suspect]
     Active Substance: TREPROSTINIL
     Dosage: 19 MCL/H, UNK
     Route: 058
     Dates: start: 2017
  5. REMODULIN [Suspect]
     Active Substance: TREPROSTINIL
     Dosage: 0.030 ?G/KG, CONTINUING
     Route: 058
  6. REMODULIN [Suspect]
     Active Substance: TREPROSTINIL
     Dosage: 24 MCL/H, UNK
     Route: 058
     Dates: start: 2017

REACTIONS (4)
  - Infusion site haemorrhage [Unknown]
  - Pulmonary arterial pressure increased [Unknown]
  - Pneumonia [Unknown]
  - Infusion site extravasation [Recovering/Resolving]

NARRATIVE: CASE EVENT DATE: 2016
